FAERS Safety Report 5975351-X (Version None)
Quarter: 2008Q4

REPORT INFORMATION
  Report Type: 
  Country: None (occurrence: None)
  Receive Date: 20081128
  Receipt Date: 20081118
  Transmission Date: 20090506
  Serious: Yes (Other)
  Sender: FDA-Public Use
  Company Number: WAES 0808USA04918

PATIENT
  Age: 61 Year
  Sex: Male

DRUGS (4)
  1. HYZAAR [Suspect]
     Indication: HYPERTENSION
     Dosage: 1 DOSE/DAILY PO
     Route: 048
     Dates: start: 20070320, end: 20080216
  2. ACTOS [Concomitant]
  3. BLOPRESS [Concomitant]
  4. NORVASC [Concomitant]

REACTIONS (1)
  - NEPHROGENIC ANAEMIA [None]
